FAERS Safety Report 18334846 (Version 1)
Quarter: 2020Q4

REPORT INFORMATION
  Report Type: Spontaneous
  Country: US (occurrence: US)
  Receive Date: 20201001
  Receipt Date: 20201001
  Transmission Date: 20210113
  Serious: No
  Sender: FDA-Public Use
  Company Number: US-MYLANLABS-2020M1076292

PATIENT
  Sex: Male

DRUGS (1)
  1. CLONIDINE TRANSDERMAL SYSTEM [Suspect]
     Active Substance: CLONIDINE
     Indication: HYPERTENSION
     Dosage: 0.1 MILLIGRAM, QW (1 PATCH EVERY WEEK)
     Route: 062
     Dates: start: 20190425

REACTIONS (4)
  - Application site rash [Recovering/Resolving]
  - Application site pain [Recovering/Resolving]
  - Application site erosion [Recovering/Resolving]
  - Application site vesicles [Recovering/Resolving]
